FAERS Safety Report 10623111 (Version 2)
Quarter: 2014Q4

REPORT INFORMATION
  Report Type: Spontaneous
  Country: CA (occurrence: CA)
  Receive Date: 20141203
  Receipt Date: 20141203
  Transmission Date: 20150529
  Serious: Yes (Hospitalization, Other)
  Sender: FDA-Public Use
  Company Number: CA-UCBSA-008729

PATIENT
  Age: 29 Year
  Sex: Female
  Weight: 50 kg

DRUGS (4)
  1. CIMZIA [Suspect]
     Active Substance: CERTOLIZUMAB PEGOL
     Indication: CROHN^S DISEASE
     Dosage: 400 MG, EV 2 WEEKS(QOW)
     Route: 058
     Dates: start: 20100211, end: 20100311
  2. IMURAN [Concomitant]
     Active Substance: AZATHIOPRINE
     Indication: CROHN^S DISEASE
     Dosage: 35 MG, ONCE DAILY (QD)
     Route: 048
     Dates: start: 200912
  3. PREDNISONE. [Concomitant]
     Active Substance: PREDNISONE
     Indication: CROHN^S DISEASE
     Dosage: 35 MG, ONCE DAILY (QD)
     Route: 048
     Dates: start: 200912
  4. METHOTREXATE [Concomitant]
     Active Substance: METHOTREXATE
     Indication: CROHN^S DISEASE
     Dosage: 25 MG, WEEKLY (QW)
     Route: 058
     Dates: start: 20100112

REACTIONS (7)
  - Abdominal pain [Not Recovered/Not Resolved]
  - Abscess [Recovered/Resolved]
  - Weight decreased [Recovered/Resolved]
  - Oophoritis [Recovered/Resolved]
  - Off label use [Unknown]
  - Intestinal perforation [Recovered/Resolved]
  - Intestinal obstruction [Recovered/Resolved]

NARRATIVE: CASE EVENT DATE: 20100211
